FAERS Safety Report 7560219-8 (Version None)
Quarter: 2011Q2

REPORT INFORMATION
  Report Type: 
  Country: None (occurrence: None)
  Receive Date: 20110617
  Receipt Date: 20110617
  Transmission Date: 20111010
  Serious: Yes (Life-Threatening)
  Sender: FDA-Public Use
  Company Number: None

PATIENT
  Age: 62 Year
  Sex: Female
  Weight: 53 kg

DRUGS (7)
  1. ABRAXANE [Suspect]
     Indication: BREAST CANCER
     Dosage: 159 MG X2 146 MG WEEKLY IV
     Route: 042
     Dates: start: 20110325, end: 20110603
  2. HERCEPTIN [Suspect]
  3. HERCEPTIN [Suspect]
     Indication: BREAST CANCER
     Dosage: 118 MG X 2 100 MG WEEKLY IV
     Route: 042
     Dates: start: 20110311, end: 20110603
  4. CARBOPLATIN [Suspect]
     Indication: BREAST CANCER
     Dosage: 553 MG, 510 MG 509 MG/509 MG Q 3 WKS IV
     Route: 042
     Dates: start: 20110305
  5. CARBOPLATIN [Suspect]
     Indication: BREAST CANCER
     Dosage: 553 MG, 510 MG 509 MG/509 MG Q 3 WKS IV
     Route: 042
     Dates: start: 20110415
  6. CARBOPLATIN [Suspect]
     Indication: BREAST CANCER
     Dosage: 553 MG, 510 MG 509 MG/509 MG Q 3 WKS IV
     Route: 042
     Dates: start: 20110516
  7. CARBOPLATIN [Suspect]
     Indication: BREAST CANCER
     Dosage: 553 MG, 510 MG 509 MG/509 MG Q 3 WKS IV
     Route: 042
     Dates: start: 20110527

REACTIONS (12)
  - FEBRILE NEUTROPENIA [None]
  - THROMBOCYTOPENIA [None]
  - HYPOKALAEMIA [None]
  - RENAL FAILURE ACUTE [None]
  - HYPERBILIRUBINAEMIA [None]
  - SEPSIS [None]
  - ACUTE RESPIRATORY DISTRESS SYNDROME [None]
  - HYPOTENSION [None]
  - NEUTROPENIA [None]
  - TACHYCARDIA [None]
  - ANAEMIA [None]
  - HYPOCALCAEMIA [None]
